FAERS Safety Report 7425679-1 (Version None)
Quarter: 2011Q2

REPORT INFORMATION
  Report Type: 
  Country: None (occurrence: None)
  Receive Date: 20110420
  Receipt Date: 20110418
  Transmission Date: 20111010
  Serious: Yes (Hospitalization)
  Sender: FDA-Public Use
  Company Number: DE-ABBOTT-11P-062-0718515-00

PATIENT
  Age: 55 Year
  Sex: Female
  Weight: 54 kg

DRUGS (6)
  1. HUMIRA [Suspect]
     Indication: CROHN'S DISEASE
     Route: 058
     Dates: start: 20090515, end: 20100308
  2. METRONIDAZOLE [Concomitant]
     Dates: start: 20101212, end: 20110103
  3. METRONIDAZOLE [Concomitant]
     Dosage: 800 MG DAILY
     Dates: start: 20101212, end: 20110103
  4. METRONIDAZOLE [Concomitant]
     Indication: CROHN'S DISEASE
     Dates: start: 20101115
  5. AZATHIOPRINE [Concomitant]
     Indication: CROHN'S DISEASE
     Dates: start: 20100401, end: 20110203
  6. METRONIDAZOLE [Concomitant]
     Dates: start: 20101129

REACTIONS (5)
  - ABSCESS [None]
  - RECTOVAGINAL SEPTUM ABSCESS [None]
  - FEMALE GENITAL TRACT FISTULA [None]
  - GASTROINTESTINAL DISORDER [None]
  - HIDRADENITIS [None]
